FAERS Safety Report 16719461 (Version 1)
Quarter: 2019Q3

REPORT INFORMATION
  Report Type: Report from Study
  Country: None (occurrence: BR)
  Receive Date: 20190820
  Receipt Date: 20190820
  Transmission Date: 20191005
  Serious: Yes (Hospitalization, Other)
  Sender: FDA-Public Use
  Company Number: BR-ABBVIE-19K-020-2707551-00

PATIENT
  Sex: Female

DRUGS (1)
  1. HUMIRA [Suspect]
     Active Substance: ADALIMUMAB
     Indication: RHEUMATOID ARTHRITIS
     Dosage: THE PATIENT USED TO WITHDRAW HUMIRA BETWEEN THE 7TH AND 8TH DAY OF EVERY MONTH.
     Route: 058
     Dates: start: 20080105, end: 20190715

REACTIONS (5)
  - Dengue fever [Unknown]
  - Cerebral disorder [Unknown]
  - Syncope [Unknown]
  - Memory impairment [Unknown]
  - Malaise [Unknown]

NARRATIVE: CASE EVENT DATE: 2019
